FAERS Safety Report 25157563 (Version 1)
Quarter: 2025Q2

REPORT INFORMATION
  Report Type: Other
  Country: CN (occurrence: CN)
  Receive Date: 20250403
  Receipt Date: 20250403
  Transmission Date: 20250717
  Serious: Yes (Other)
  Sender: XCOVERY HOLDINGS
  Company Number: CN-XCO-202500007

PATIENT
  Age: 61 Year
  Sex: Female

DRUGS (1)
  1. ENSARTINIB HYDROCHLORIDE [Suspect]
     Active Substance: ENSARTINIB HYDROCHLORIDE
     Indication: Lung carcinoma cell type unspecified recurrent
     Route: 048
     Dates: start: 20250205, end: 20250225

REACTIONS (4)
  - Gastrointestinal disorder [Recovering/Resolving]
  - Skin ulcer [Recovering/Resolving]
  - Pruritus [Recovering/Resolving]
  - Rash pustular [Recovering/Resolving]

NARRATIVE: CASE EVENT DATE: 20250215
